FAERS Safety Report 6062040-9 (Version None)
Quarter: 2009Q1

REPORT INFORMATION
  Report Type: 
  Country: None (occurrence: None)
  Receive Date: 20090202
  Receipt Date: 20090126
  Transmission Date: 20090719
  Serious: Yes (Death, Other)
  Sender: FDA-Public Use
  Company Number: TH-GENENTECH-276343

PATIENT
  Age: 88 Year
  Sex: Male

DRUGS (2)
  1. ACTIVASE [Suspect]
     Indication: ISCHAEMIC STROKE
     Dosage: 6.5 MG, UNK
     Route: 040
     Dates: start: 20090115, end: 20090115
  2. ACTIVASE [Suspect]
     Dosage: 59.2 MG, UNK
     Route: 041
     Dates: start: 20090115, end: 20090115

REACTIONS (3)
  - ANAPHYLACTIC SHOCK [None]
  - HYPOTENSION [None]
  - SEPTIC SHOCK [None]
